FAERS Safety Report 15848810 (Version 2)
Quarter: 2019Q2

REPORT INFORMATION
  Report Type: Spontaneous
  Country: US (occurrence: US)
  Receive Date: 20190121
  Receipt Date: 20190626
  Transmission Date: 20190711
  Serious: Yes (Other)
  Sender: FDA-Public Use
  Company Number: US-KYOWAKIRIN-2019BKK000444

PATIENT

DRUGS (2)
  1. CRYSVITA [Suspect]
     Active Substance: BUROSUMAB-TWZA
     Indication: HYPOPHOSPHATAEMIA
     Dosage: 40 MG, EVERY OTHER WEEK
     Route: 058
     Dates: start: 20180831
  2. CRYSVITA [Suspect]
     Active Substance: BUROSUMAB-TWZA
     Indication: HEREDITARY HYPOPHOSPHATAEMIC RICKETS
     Dosage: 40 MG, EVERY OTHER WEEK
     Route: 058
     Dates: start: 20180831

REACTIONS (6)
  - Paraesthesia oral [Unknown]
  - Adverse event [Unknown]
  - Oral discomfort [Unknown]
  - Tooth disorder [Unknown]
  - Oral pruritus [Unknown]
  - Oral pain [Not Recovered/Not Resolved]
